FAERS Safety Report 9747681 (Version 1)
Quarter: 2013Q4

REPORT INFORMATION
  Report Type: Spontaneous
  Country: US (occurrence: None)
  Receive Date: 20131211
  Receipt Date: 20131211
  Transmission Date: 20140711
  Serious: Yes (Disabling)
  Sender: FDA-Public Use
  Company Number: None

PATIENT
  Age: 37 Year
  Sex: Female
  Weight: 54.43 kg

DRUGS (1)
  1. ENTOCORT [Suspect]
     Indication: COLITIS ULCERATIVE
     Dosage: 1 PILL ONCE DAILY TAKEN BY MOUTH
     Route: 048
     Dates: start: 20121101, end: 20130112

REACTIONS (2)
  - Torticollis [None]
  - Tremor [None]
